FAERS Safety Report 8319568-8 (Version None)
Quarter: 2012Q2

REPORT INFORMATION
  Report Type: 
  Country: None (occurrence: None)
  Receive Date: 20120427
  Receipt Date: 20120423
  Transmission Date: 20120825
  Serious: Yes (Hospitalization)
  Sender: FDA-Public Use
  Company Number: PHEH2012US007963

PATIENT
  Sex: Female
  Weight: 28.2 kg

DRUGS (3)
  1. PREVACID [Concomitant]
     Indication: ABDOMINAL PAIN
     Dosage: 30 MG, UNK
     Route: 048
     Dates: start: 20110514
  2. ANAKINRA [Concomitant]
     Indication: CRYOPYRIN ASSOCIATED PERIODIC SYNDROME
     Dosage: 100 MG, UNK
     Route: 058
     Dates: start: 20110513, end: 20120313
  3. ILARIS [Suspect]
     Indication: CRYOPYRIN ASSOCIATED PERIODIC SYNDROME
     Dosage: 90 MG, UNK
     Route: 058
     Dates: start: 20120314

REACTIONS (3)
  - PAPILLOEDEMA [None]
  - HEADACHE [None]
  - EYE PAIN [None]
